FAERS Safety Report 8546728-3 (Version None)
Quarter: 2012Q3

REPORT INFORMATION
  Report Type: 
  Country: None (occurrence: None)
  Receive Date: 20120727
  Receipt Date: 20120406
  Transmission Date: 20120928
  Serious: No
  Sender: FDA-Public Use
  Company Number: US-ASTRAZENECA-2012SE06841

PATIENT
  Age: 65 Year
  Sex: Male

DRUGS (4)
  1. SEROQUEL XR [Suspect]
     Route: 048
  2. ATIVAN [Concomitant]
  3. ABILIFY [Concomitant]
  4. CYMBALTA [Concomitant]

REACTIONS (5)
  - BIPOLAR DISORDER [None]
  - NERVOUSNESS [None]
  - POST-TRAUMATIC STRESS DISORDER [None]
  - GLAUCOMA [None]
  - ANXIETY [None]
